FAERS Safety Report 21674916 (Version 1)
Quarter: 2022Q4

REPORT INFORMATION
  Report Type: Spontaneous
  Country: US (occurrence: US)
  Receive Date: 20221202
  Receipt Date: 20221202
  Transmission Date: 20230113
  Serious: No
  Sender: FDA-Public Use
  Company Number: US-INCYTE CORPORATION-2022IN011518

PATIENT

DRUGS (2)
  1. JAKAFI [Suspect]
     Active Substance: RUXOLITINIB
     Indication: Essential thrombocythaemia
     Dosage: UNK
     Route: 048
     Dates: start: 20221027
  2. VONJO [Concomitant]
     Active Substance: PACRITINIB
     Indication: Product used for unknown indication
     Route: 065

REACTIONS (9)
  - Diarrhoea [Unknown]
  - Hyperphagia [Unknown]
  - Nausea [Unknown]
  - Night sweats [Unknown]
  - Back pain [Unknown]
  - Sacral pain [Unknown]
  - Pain in extremity [Unknown]
  - Drug ineffective for unapproved indication [Unknown]
  - Off label use [Unknown]

NARRATIVE: CASE EVENT DATE: 20221027
